FAERS Safety Report 8666251 (Version 2)
Quarter: 2013Q4

REPORT INFORMATION
  Report Type: Spontaneous
  Country: FR (occurrence: FR)
  Receive Date: 20120713
  Receipt Date: 20131031
  Transmission Date: 20140711
  Serious: Yes (Hospitalization)
  Sender: FDA-Public Use
  Company Number: FR-009507513-1206FRA00166

PATIENT
  Age: 65 Year
  Sex: Male
  Weight: 63 kg

DRUGS (6)
  1. VELMETIA [Suspect]
     Indication: DYSLIPIDAEMIA
     Dosage: 1000 MG-50
     Route: 048
  2. PLAVIX [Suspect]
     Indication: MYOCARDIAL ISCHAEMIA
     Dosage: 75 MG, QD
     Route: 048
  3. AMAREL [Suspect]
     Indication: DIABETES MELLITUS
     Dosage: 8 MG, QD
     Route: 048
  4. TENORMINE [Suspect]
     Indication: MYOCARDIAL ISCHAEMIA
     Dosage: 200 MG, QD
     Route: 048
  5. COTAREG [Suspect]
     Indication: HYPERTENSION
     Route: 048
  6. LIPANTHYL [Suspect]
     Indication: DYSLIPIDAEMIA
     Dosage: 67 MG, QD
     Route: 048

REACTIONS (1)
  - Colitis ulcerative [Recovered/Resolved]
